FAERS Safety Report 20585812 (Version 1)
Quarter: 2022Q1

REPORT INFORMATION
  Report Type: Other
  Country: JP (occurrence: None)
  Receive Date: 20220312
  Receipt Date: 20220312
  Transmission Date: 20220423
  Serious: Yes (Other)
  Sender: FDA-Public Use
  Company Number: JP-Neopharma Inc-000550

PATIENT
  Age: 31 Year
  Sex: Male

DRUGS (2)
  1. AMOXICILLIN [Suspect]
     Active Substance: AMOXICILLIN
     Indication: Syphilis
     Dosage: 1.5 G/DAY FOR FOUR WEEKS
     Route: 048
  2. AMOXICILLIN [Suspect]
     Active Substance: AMOXICILLIN
     Indication: Syphilis

REACTIONS (2)
  - Syphilis [Recovered/Resolved]
  - Rash [Unknown]
